FAERS Safety Report 25234928 (Version 1)
Quarter: 2025Q2

REPORT INFORMATION
  Report Type: Spontaneous
  Country: CN (occurrence: CN)
  Receive Date: 20250424
  Receipt Date: 20250424
  Transmission Date: 20250716
  Serious: Yes (Hospitalization)
  Sender: MYLAN
  Company Number: CN-MYLANLABS-2025M1030781

PATIENT
  Age: 49 Year
  Sex: Male
  Weight: 65 kg

DRUGS (3)
  1. LIPITOR [Suspect]
     Active Substance: ATORVASTATIN CALCIUM
     Indication: Resuscitation
     Dosage: 20 MILLIGRAM, QD
     Dates: start: 20250326, end: 20250407
  2. OXIRACETAM [Concomitant]
     Active Substance: OXIRACETAM
     Indication: Resuscitation
     Dosage: 4 GRAM, QD
     Dates: start: 20250401, end: 20250407
  3. HERBALS [Concomitant]
     Active Substance: HERBALS
     Indication: Resuscitation
     Dosage: 50 MILLILITER, BID
     Dates: start: 20250326, end: 20250407

REACTIONS (2)
  - Hepatic enzyme increased [Unknown]
  - Product use issue [Unknown]

NARRATIVE: CASE EVENT DATE: 20250326
